FAERS Safety Report 5993718-0 (Version None)
Quarter: 2008Q4

REPORT INFORMATION
  Report Type: 
  Country: None (occurrence: None)
  Receive Date: 20081212
  Receipt Date: 20081203
  Transmission Date: 20090506
  Serious: Yes (Other)
  Sender: FDA-Public Use
  Company Number: US-BAYER-200814767BCC

PATIENT
  Sex: Female

DRUGS (2)
  1. NEO-SYNEPHRINE EXTRA MOISTURIZING 12 HOUR SPRAY [Suspect]
     Indication: DRUG USE FOR UNKNOWN INDICATION
     Route: 045
  2. NEO-SYNEPHRINE NIGHTTIME SPRAY [Suspect]
     Indication: DRUG USE FOR UNKNOWN INDICATION

REACTIONS (2)
  - ADVERSE EVENT [None]
  - DRUG DEPENDENCE [None]
